FAERS Safety Report 4730609-7 (Version None)
Quarter: 2005Q3

REPORT INFORMATION
  Report Type: 
  Country: None (occurrence: None)
  Receive Date: 20050801
  Receipt Date: 20050323
  Transmission Date: 20060218
  Serious: No
  Sender: FDA-Public Use
  Company Number: DE-SOLVAY-00305000929

PATIENT
  Age: 1119 Month
  Sex: Female

DRUGS (2)
  1. RAMIPRIL 2.5 [Concomitant]
     Indication: HYPERTENSION
     Dosage: DAILY DOSE: 2.5 UNKNOWN
     Route: 048
     Dates: end: 20050419
  2. PANKREON FORTE 28000 [Suspect]
     Indication: PANCREATIC INSUFFICIENCY
     Dosage: DAILY DOSE:  UNKNOWN
     Route: 065
     Dates: start: 20050328, end: 20050408

REACTIONS (6)
  - ASTHENIA [None]
  - DIZZINESS [None]
  - DYSPHAGIA [None]
  - FOREIGN BODY TRAUMA [None]
  - PHARMACEUTICAL PRODUCT COMPLAINT [None]
  - PHARYNGEAL ERYTHEMA [None]
